FAERS Safety Report 5006100-X (Version None)
Quarter: 2006Q2

REPORT INFORMATION
  Report Type: 
  Country: None (occurrence: None)
  Receive Date: 20060518
  Receipt Date: 20050527
  Transmission Date: 20061013
  Serious: Yes (Hospitalization)
  Sender: FDA-Public Use
  Company Number: US-MERCK-0505USA03343

PATIENT
  Age: 76 Year
  Sex: Female

DRUGS (1)
  1. VIOXX [Suspect]
     Route: 048
     Dates: start: 19991007, end: 20010704

REACTIONS (31)
  - ACUTE MYOCARDIAL INFARCTION [None]
  - ACUTE SINUSITIS [None]
  - ANGINA PECTORIS [None]
  - ANGINA UNSTABLE [None]
  - AORTIC VALVE INCOMPETENCE [None]
  - ARTERIOSCLEROSIS CORONARY ARTERY [None]
  - ARTHRALGIA [None]
  - CARDIAC FAILURE CONGESTIVE [None]
  - CARPAL TUNNEL SYNDROME [None]
  - CHOLECYSTITIS [None]
  - DRUG HYPERSENSITIVITY [None]
  - HAEMANGIOMA OF LIVER [None]
  - HOT FLUSH [None]
  - HYPERTENSION [None]
  - HYPOTHYROIDISM [None]
  - ISCHAEMIC CARDIOMYOPATHY [None]
  - LEFT VENTRICULAR FAILURE [None]
  - LOSS OF CONSCIOUSNESS [None]
  - MENIERE'S DISEASE [None]
  - MENOPAUSAL SYMPTOMS [None]
  - MITRAL VALVE INCOMPETENCE [None]
  - NECK PAIN [None]
  - OEDEMA PERIPHERAL [None]
  - OTITIS MEDIA [None]
  - PHARYNGITIS [None]
  - PULMONARY HYPERTENSION [None]
  - RENAL CYST [None]
  - SWELLING [None]
  - TINNITUS [None]
  - TRICUSPID VALVE INCOMPETENCE [None]
  - URINARY TRACT INFECTION [None]
